FAERS Safety Report 10571235 (Version 4)
Quarter: 2015Q4

REPORT INFORMATION
  Report Type: Spontaneous
  Country: JP (occurrence: JP)
  Receive Date: 20141107
  Receipt Date: 20151230
  Transmission Date: 20160304
  Serious: Yes (Hospitalization, Disabling)
  Sender: FDA-Public Use
  Company Number: JP-AMGEN-JPNSP2014085672

PATIENT
  Age: 48 Year
  Sex: Female
  Weight: 46 kg

DRUGS (17)
  1. RANMARK [Suspect]
     Active Substance: DENOSUMAB
     Indication: METASTASES TO BONE
  2. PRIMPERAN [Concomitant]
     Active Substance: METOCLOPRAMIDE HYDROCHLORIDE
     Dosage: 5 MG, TID, IMMEDIATELY AFTER EACH MEAL
     Route: 065
     Dates: start: 20131204
  3. GASTER [Concomitant]
     Active Substance: FAMOTIDINE
     Dosage: 20 MG, BID, IMMEDIATELY AFTER THE MORNING AND DINNER
     Route: 065
     Dates: start: 20131204
  4. LYRICA [Concomitant]
     Active Substance: PREGABALIN
     Dosage: 75 MG, QD, SOON AFTER BREAKFAST
     Route: 065
     Dates: start: 20131204
  5. TRAMAL [Concomitant]
     Active Substance: TRAMADOL
     Dosage: 25 MG, QID
     Route: 065
     Dates: start: 20131204
  6. ZOMETA [Suspect]
     Active Substance: ZOLEDRONIC ACID
     Indication: PRODUCT USED FOR UNKNOWN INDICATION
     Dosage: UNK
     Route: 065
  7. FERROMIA [Concomitant]
     Active Substance: FERROUS CITRATE
     Dosage: 50 MG, BID, IMMEDIATELY AFTER THE MORNING AND DINNER
     Route: 065
     Dates: start: 20131204
  8. RANMARK [Suspect]
     Active Substance: DENOSUMAB
     Indication: BONE LESION
  9. OXINORM                            /00045603/ [Concomitant]
     Active Substance: OXYCODONE HYDROCHLORIDE
     Dosage: UNK, AS NECESSARY
     Route: 065
     Dates: start: 20140421
  10. MOHRUS [Concomitant]
     Active Substance: KETOPROFEN
     Dosage: 40 MG, QD
     Route: 050
     Dates: start: 20131204
  11. NOLVADEX-20 [Concomitant]
     Dosage: 20 MG, QD, IMMEDIATELY AFTER THE MORNING
     Route: 065
     Dates: start: 20140728
  12. FENTANYL CITRATE. [Concomitant]
     Active Substance: FENTANYL CITRATE
     Dosage: 8 MG, QD
     Route: 065
     Dates: start: 20140521
  13. RANMARK [Suspect]
     Active Substance: DENOSUMAB
     Indication: BREAST CANCER
     Dosage: 120 MG, Q4WK
     Route: 058
     Dates: start: 20140404, end: 20140922
  14. TS-1 [Concomitant]
     Active Substance: GIMERACIL\OTERACIL\TEGAFUR
     Indication: METASTASES TO BONE
     Dosage: 100 MG, BID
     Route: 048
     Dates: start: 201210, end: 201407
  15. TS-1 [Concomitant]
     Active Substance: GIMERACIL\OTERACIL\TEGAFUR
     Indication: BREAST CANCER
  16. TAMOXIFEN                          /00388702/ [Concomitant]
     Active Substance: TAMOXIFEN
     Dosage: UNK
     Route: 065
  17. MAGMITT [Concomitant]
     Active Substance: MAGNESIUM OXIDE
     Dosage: 330 MG, TID, IMMEDIATELY AFTER EACH MEAL
     Route: 065
     Dates: start: 20131204

REACTIONS (1)
  - Osteonecrosis of jaw [Recovering/Resolving]

NARRATIVE: CASE EVENT DATE: 20141017
